FAERS Safety Report 4778505-3 (Version None)
Quarter: 2005Q3

REPORT INFORMATION
  Report Type: 
  Country: None (occurrence: None)
  Receive Date: 20050922
  Receipt Date: 20050912
  Transmission Date: 20060218
  Serious: Yes (Other)
  Sender: FDA-Public Use
  Company Number: 2005127007

PATIENT
  Sex: Male
  Weight: 90.7194 kg

DRUGS (5)
  1. DILANTIN [Suspect]
     Indication: CONVULSION
     Dosage: 400 MG (200 MG, 1 IN 1 D) ORAL
     Route: 048
     Dates: start: 19710101
  2. PHENOBARBITAL TAB [Concomitant]
  3. ALL OTHER THERAPEUTIC PRODUCTS [Concomitant]
  4. SULFASALAZINE [Concomitant]
  5. PREDNISONE [Concomitant]

REACTIONS (3)
  - BODY HEIGHT DECREASED [None]
  - COLITIS ULCERATIVE [None]
  - WEIGHT DECREASED [None]
